FAERS Safety Report 7544068-2 (Version None)
Quarter: 2011Q2

REPORT INFORMATION
  Report Type: 
  Country: None (occurrence: None)
  Receive Date: 20110613
  Receipt Date: 20051021
  Transmission Date: 20111010
  Serious: Yes (Other)
  Sender: FDA-Public Use
  Company Number: PHHO2005BR16784

PATIENT
  Age: 54 Year
  Sex: Female
  Weight: 110 kg

DRUGS (6)
  1. DIOVAN HCT [Suspect]
     Indication: HYPERTENSION
     Dosage: 160/12.5 MG
     Route: 048
  2. HYGROTON [Suspect]
     Indication: HYPERTENSION
     Route: 048
  3. VITAMINS NOS [Concomitant]
  4. BENZETACIL SIMPLE [Concomitant]
     Indication: RHEUMATIC FEVER
  5. CALCIUM W/VITAMIN D NOS [Concomitant]
     Indication: OSTEOPOROSIS
     Dosage: 1 TABLET, QD
  6. ANTIINFLAMMATORY/ANTIRHEUMATIC PRODUCTS [Concomitant]
     Indication: OSTEOARTHRITIS

REACTIONS (4)
  - LEFT VENTRICULAR HYPERTROPHY [None]
  - BLOOD PRESSURE SYSTOLIC INCREASED [None]
  - DIZZINESS [None]
  - OEDEMA PERIPHERAL [None]
